FAERS Safety Report 8827990 (Version 3)
Quarter: 2013Q4

REPORT INFORMATION
  Report Type: Spontaneous
  Country: GB (occurrence: GB)
  Receive Date: 20121008
  Receipt Date: 20131004
  Transmission Date: 20140711
  Serious: Yes (Life-Threatening, Hospitalization, Disabling, Other)
  Sender: FDA-Public Use
  Company Number: GB-JNJFOC-20121000494

PATIENT
  Age: 50 Year
  Sex: Female
  Weight: 50 kg

DRUGS (37)
  1. RISPERIDONE [Suspect]
     Indication: CRANIOCEREBRAL INJURY
     Route: 048
  2. RISPERIDONE [Suspect]
     Indication: CRANIOCEREBRAL INJURY
     Route: 048
  3. RISPERIDONE [Suspect]
     Indication: CRANIOCEREBRAL INJURY
     Route: 048
     Dates: start: 200908, end: 201007
  4. RISPERIDONE [Suspect]
     Indication: CRANIOCEREBRAL INJURY
     Route: 048
     Dates: start: 200812
  5. RISPERIDONE [Suspect]
     Indication: CRANIOCEREBRAL INJURY
     Route: 048
     Dates: start: 200903
  6. RISPERIDONE [Suspect]
     Indication: CRANIOCEREBRAL INJURY
     Route: 048
     Dates: start: 20080924, end: 200903
  7. RISPERIDONE [Suspect]
     Indication: CRANIOCEREBRAL INJURY
     Route: 048
     Dates: start: 20110120, end: 20110124
  8. RISPERIDONE [Suspect]
     Indication: CRANIOCEREBRAL INJURY
     Route: 048
     Dates: start: 20110124
  9. RISPERIDONE [Suspect]
     Indication: RELAXATION THERAPY
     Route: 048
     Dates: start: 200812
  10. RISPERIDONE [Suspect]
     Indication: RELAXATION THERAPY
     Route: 048
  11. RISPERIDONE [Suspect]
     Indication: RELAXATION THERAPY
     Route: 048
     Dates: start: 200908, end: 201007
  12. RISPERIDONE [Suspect]
     Indication: RELAXATION THERAPY
     Route: 048
     Dates: start: 20080924, end: 200903
  13. RISPERIDONE [Suspect]
     Indication: RELAXATION THERAPY
     Route: 048
     Dates: start: 200903
  14. RISPERIDONE [Suspect]
     Indication: RELAXATION THERAPY
     Route: 048
     Dates: start: 20110124
  15. RISPERIDONE [Suspect]
     Indication: RELAXATION THERAPY
     Route: 048
     Dates: start: 20110120, end: 20110124
  16. RISPERIDONE [Suspect]
     Indication: RELAXATION THERAPY
     Route: 048
  17. RISPERIDONE [Suspect]
     Indication: POST-TRAUMATIC STRESS DISORDER
     Route: 048
     Dates: start: 200903
  18. RISPERIDONE [Suspect]
     Indication: POST-TRAUMATIC STRESS DISORDER
     Route: 048
     Dates: start: 20110120, end: 20110124
  19. RISPERIDONE [Suspect]
     Indication: POST-TRAUMATIC STRESS DISORDER
     Route: 048
     Dates: start: 20110124
  20. RISPERIDONE [Suspect]
     Indication: POST-TRAUMATIC STRESS DISORDER
     Route: 048
     Dates: start: 200812
  21. RISPERIDONE [Suspect]
     Indication: POST-TRAUMATIC STRESS DISORDER
     Route: 048
     Dates: start: 200908, end: 201007
  22. RISPERIDONE [Suspect]
     Indication: POST-TRAUMATIC STRESS DISORDER
     Route: 048
  23. RISPERIDONE [Suspect]
     Indication: POST-TRAUMATIC STRESS DISORDER
     Route: 048
  24. RISPERIDONE [Suspect]
     Indication: POST-TRAUMATIC STRESS DISORDER
     Route: 048
     Dates: start: 20080924, end: 200903
  25. RISPERIDONE [Suspect]
     Indication: ABNORMAL BEHAVIOUR
     Route: 048
     Dates: start: 200812
  26. RISPERIDONE [Suspect]
     Indication: ABNORMAL BEHAVIOUR
     Route: 048
     Dates: start: 200903
  27. RISPERIDONE [Suspect]
     Indication: ABNORMAL BEHAVIOUR
     Route: 048
     Dates: start: 200908, end: 201007
  28. RISPERIDONE [Suspect]
     Indication: ABNORMAL BEHAVIOUR
     Route: 048
     Dates: start: 20080924, end: 200903
  29. RISPERIDONE [Suspect]
     Indication: ABNORMAL BEHAVIOUR
     Route: 048
     Dates: start: 20110120, end: 20110124
  30. RISPERIDONE [Suspect]
     Indication: ABNORMAL BEHAVIOUR
     Route: 048
     Dates: start: 20110124
  31. RISPERIDONE [Suspect]
     Indication: ABNORMAL BEHAVIOUR
     Route: 048
  32. RISPERIDONE [Suspect]
     Indication: ABNORMAL BEHAVIOUR
     Route: 048
  33. ANTIBIOTICS [Concomitant]
     Indication: STAPHYLOCOCCAL INFECTION
     Route: 065
     Dates: start: 201102, end: 201208
  34. ANTIBIOTICS [Concomitant]
     Indication: CLOSTRIDIUM DIFFICILE INFECTION
     Route: 065
     Dates: start: 201102, end: 201208
  35. ANALGESIC [Concomitant]
     Indication: PAIN
     Route: 065
  36. BUTRANS [Concomitant]
     Route: 065
  37. CITALOPRAM [Concomitant]
     Route: 065

REACTIONS (13)
  - Dyspnoea [Unknown]
  - Psychotic disorder [Unknown]
  - Sydenham^s chorea [Unknown]
  - Aphasia [Not Recovered/Not Resolved]
  - Emotional distress [Unknown]
  - Extrapyramidal disorder [Not Recovered/Not Resolved]
  - Aggression [Not Recovered/Not Resolved]
  - Condition aggravated [Unknown]
  - Overdose [Unknown]
  - Quadriplegia [Unknown]
  - Stupor [Unknown]
  - Sedation [Not Recovered/Not Resolved]
  - Confusional state [Unknown]
